FAERS Safety Report 6188132-1 (Version None)
Quarter: 2009Q2

REPORT INFORMATION
  Report Type: 
  Country: None (occurrence: None)
  Receive Date: 20090513
  Receipt Date: 20080814
  Transmission Date: 20091009
  Serious: No
  Sender: FDA-Public Use
  Company Number: A0740509A

PATIENT
  Sex: Male

DRUGS (1)
  1. DYNACIRC [Suspect]
     Indication: DRUG USE FOR UNKNOWN INDICATION

REACTIONS (1)
  - HYPERTENSION [None]
